FAERS Safety Report 10043612 (Version 1)
Quarter: 2014Q1

REPORT INFORMATION
  Report Type: Report from Study
  Country: CA (occurrence: CA)
  Receive Date: 20140328
  Receipt Date: 20140328
  Transmission Date: 20141002
  Serious: Yes (Disabling)
  Sender: FDA-Public Use
  Company Number: CA-JNJFOC-20140314017

PATIENT
  Age: 29 Year
  Sex: Female
  Weight: 61.6 kg

DRUGS (3)
  1. REMICADE [Suspect]
     Indication: COLITIS ULCERATIVE
     Route: 042
     Dates: start: 201108
  2. AZATHIOPRINE [Concomitant]
     Dosage: 11/2 TABLET
     Route: 048
  3. SALOFALK [Concomitant]
     Dosage: NOT USED RECENTLY
     Route: 065

REACTIONS (3)
  - Bone pain [Not Recovered/Not Resolved]
  - Arthralgia [Not Recovered/Not Resolved]
  - Activities of daily living impaired [Not Recovered/Not Resolved]
